FAERS Safety Report 6307087-X (Version None)
Quarter: 2009Q3

REPORT INFORMATION
  Report Type: 
  Country: None (occurrence: None)
  Receive Date: 20090812
  Receipt Date: 20090804
  Transmission Date: 20100115
  Serious: Yes (Death, Hospitalization)
  Sender: FDA-Public Use
  Company Number: US-GENENTECH-283064

PATIENT
  Age: 75 Year
  Sex: Female
  Weight: 80.29 kg

DRUGS (11)
  1. BLINDED BEVACIZUMAB [Suspect]
     Indication: OVARIAN EPITHELIAL CANCER
     Dosage: 15 MG/KG, Q21D
     Route: 042
     Dates: end: 20090421
  2. BLINDED PLACEBO [Suspect]
     Indication: OVARIAN EPITHELIAL CANCER
     Dosage: 15 MG/KG, Q21D
     Route: 042
     Dates: end: 20090421
  3. PACLITAXEL [Suspect]
     Indication: OVARIAN CANCER
     Dosage: 175 MG/M2, Q21D
     Route: 042
     Dates: start: 20090113, end: 20090421
  4. CARBOPLATIN [Suspect]
     Indication: OVARIAN CANCER
     Dosage: 6 AUC, Q21D
     Route: 042
     Dates: start: 20090113, end: 20090421
  5. COUMADIN [Concomitant]
     Indication: DRUG USE FOR UNKNOWN INDICATION
  6. DILANTIN [Concomitant]
     Indication: DRUG USE FOR UNKNOWN INDICATION
  7. CARVEDILOL [Concomitant]
     Indication: DRUG USE FOR UNKNOWN INDICATION
  8. LOVASTATIN [Concomitant]
     Indication: DRUG USE FOR UNKNOWN INDICATION
  9. PHENOBARB [Concomitant]
     Indication: DRUG USE FOR UNKNOWN INDICATION
  10. DOCUSATE [Concomitant]
     Indication: DRUG USE FOR UNKNOWN INDICATION
  11. COMPAZINE [Concomitant]
     Indication: DRUG USE FOR UNKNOWN INDICATION

REACTIONS (6)
  - ASCITES [None]
  - HAEMOGLOBIN DECREASED [None]
  - LYMPHOPENIA [None]
  - OPPORTUNISTIC INFECTION [None]
  - PLATELET COUNT DECREASED [None]
  - PYREXIA [None]
